FAERS Safety Report 13270934 (Version 1)
Quarter: 2017Q1

REPORT INFORMATION
  Report Type: Spontaneous
  Country: US (occurrence: US)
  Receive Date: 20170225
  Receipt Date: 20170225
  Transmission Date: 20170428
  Serious: No
  Sender: FDA-Public Use
  Company Number: US-DRREDDYS-USA/USA/16/0084926

PATIENT
  Age: 51 Year
  Sex: Female
  Weight: 65.7 kg

DRUGS (3)
  1. SANDOZ SUMATRIPTAN [Suspect]
     Active Substance: SUMATRIPTAN SUCCINATE
     Indication: MIGRAINE
     Route: 058
     Dates: start: 20160610
  2. BOTOX [Concomitant]
     Active Substance: ONABOTULINUMTOXINA
     Indication: PRODUCT USED FOR UNKNOWN INDICATION
     Dosage: EVERY 3 MONTHS
     Route: 065
  3. SUMATRIPTAN INJECTION USP, 6 MG/0.5 ML [Suspect]
     Active Substance: SUMATRIPTAN
     Indication: MIGRAINE
     Route: 058
     Dates: start: 20160610

REACTIONS (2)
  - Expired product administered [Unknown]
  - Product physical issue [Unknown]
